FAERS Safety Report 6126293-0 (Version None)
Quarter: 2009Q1

REPORT INFORMATION
  Report Type: 
  Country: None (occurrence: None)
  Receive Date: 20090320
  Receipt Date: 20090312
  Transmission Date: 20090719
  Serious: Yes (Other)
  Sender: FDA-Public Use
  Company Number: IN-MERCK-0903USA02598

PATIENT
  Age: 73 Year
  Sex: Female
  Weight: 72 kg

DRUGS (5)
  1. JANUVIA [Suspect]
     Indication: TYPE 2 DIABETES MELLITUS
     Route: 048
  2. DIAMICRON MR [Concomitant]
     Indication: DIABETES MELLITUS
     Route: 048
     Dates: start: 20070508
  3. TONACT EZ [Concomitant]
     Route: 065
  4. HUMULIN 70/30 [Concomitant]
     Indication: DIABETES MELLITUS
     Route: 058
     Dates: start: 20080608
  5. COVANCE [Concomitant]
     Indication: HYPERTENSION
     Route: 065

REACTIONS (3)
  - ECZEMA [None]
  - SKIN INFECTION [None]
  - XEROSIS [None]
